FAERS Safety Report 13667280 (Version 2)
Quarter: 2018Q1

REPORT INFORMATION
  Report Type: Spontaneous
  Country: IL (occurrence: IL)
  Receive Date: 20170619
  Receipt Date: 20180131
  Transmission Date: 20180508
  Serious: Yes (Hospitalization, Other)
  Sender: FDA-Public Use
  Company Number: IL-MYLANLABS-2017M1036419

PATIENT
  Age: 34 Year
  Sex: Female

DRUGS (7)
  1. BIPERIDEN [Suspect]
     Active Substance: BIPERIDEN
     Indication: SCHIZOPHRENIA
  2. CLONAZEPAM. [Suspect]
     Active Substance: CLONAZEPAM
     Indication: SCHIZOPHRENIA
  3. PENFLURIDOL [Suspect]
     Active Substance: PENFLURIDOL
     Indication: SCHIZOPHRENIA
  4. ZUCLOPENTHIXOL [Suspect]
     Active Substance: ZUCLOPENTHIXOL
     Indication: SCHIZOPHRENIA
  5. PROMETHAZINE [Suspect]
     Active Substance: PROMETHAZINE\PROMETHAZINE HYDROCHLORIDE
     Indication: SCHIZOPHRENIA
  6. FLUPHENAZINE [Suspect]
     Active Substance: FLUPHENAZINE
     Indication: SCHIZOPHRENIA
  7. CLOZAPINE. [Suspect]
     Active Substance: CLOZAPINE
     Indication: SCHIZOPHRENIA

REACTIONS (11)
  - Pulmonary embolism [Unknown]
  - Refusal of examination [Unknown]
  - Blood immunoglobulin M increased [Unknown]
  - Coombs test positive [Unknown]
  - Ulcer [Unknown]
  - Haemolytic anaemia [Unknown]
  - Thrombocytopenia [Unknown]
  - Antiphospholipid syndrome [Unknown]
  - Diet refusal [Unknown]
  - Blood immunoglobulin G increased [Unknown]
  - Deep vein thrombosis [Not Recovered/Not Resolved]
